FAERS Safety Report 6507086-9 (Version None)
Quarter: 2009Q4

REPORT INFORMATION
  Report Type: 
  Country: None (occurrence: None)
  Receive Date: 20091221
  Receipt Date: 20091209
  Transmission Date: 20100525
  Serious: Yes (Hospitalization)
  Sender: FDA-Public Use
  Company Number: PHHY2009US54989

PATIENT
  Sex: Female

DRUGS (9)
  1. EXJADE [Suspect]
     Indication: MYELODYSPLASTIC SYNDROME
     Dosage: 1250 MG DAILY
     Route: 048
     Dates: start: 20090827
  2. COREG [Concomitant]
  3. LASIX [Concomitant]
  4. PENTASA [Concomitant]
  5. MULTI-VITAMINS [Concomitant]
  6. GLYBURIDE [Concomitant]
  7. CLONIDINE [Concomitant]
  8. LISINOPRIL [Concomitant]
  9. IMODIUM A-D [Concomitant]

REACTIONS (1)
  - PNEUMONIA [None]
